FAERS Safety Report 4291912-0 (Version None)
Quarter: 2004Q1

REPORT INFORMATION
  Report Type: 
  Country: None (occurrence: None)
  Receive Date: 20040126
  Receipt Date: 20031112
  Transmission Date: 20041129
  Serious: No
  Sender: FDA-Public Use
  Company Number: USA031152436

PATIENT
  Age: 78 Year
  Sex: Female

DRUGS (1)
  1. FORTEO [Suspect]
     Dates: start: 20031029, end: 20031107

REACTIONS (9)
  - ABDOMINAL PAIN LOWER [None]
  - CHILLS [None]
  - DIZZINESS [None]
  - DRY MOUTH [None]
  - DYSKINESIA [None]
  - FEELING HOT [None]
  - MALAISE [None]
  - NAUSEA [None]
  - POLLAKIURIA [None]
